FAERS Safety Report 16854156 (Version 1)
Quarter: 2019Q3

REPORT INFORMATION
  Report Type: Spontaneous
  Country: US (occurrence: US)
  Receive Date: 20190805
  Receipt Date: 20190805
  Transmission Date: 20191005
  Serious: No
  Sender: FDA-Public Use
  Company Number: None

PATIENT
  Age: 83 Year
  Sex: Female

DRUGS (1)
  1. AMBRISERTAN 5MG TAB (X30) [Suspect]
     Active Substance: AMBRISENTAN
     Indication: PULMONARY ARTERIAL HYPERTENSION
     Route: 048
     Dates: start: 20190718

REACTIONS (4)
  - Dyspnoea [None]
  - Dry mouth [None]
  - Dysphonia [None]
  - Cough [None]

NARRATIVE: CASE EVENT DATE: 20190720
